FAERS Safety Report 18637068 (Version 3)
Quarter: 2021Q1

REPORT INFORMATION
  Report Type: Spontaneous
  Country: JP (occurrence: JP)
  Receive Date: 20201218
  Receipt Date: 20210209
  Transmission Date: 20210419
  Serious: Yes (Hospitalization)
  Sender: FDA-Public Use
  Company Number: JP-ALLERGAN-2044696US

PATIENT
  Sex: Male

DRUGS (5)
  1. ASENAPINE MALEATE ? BP [Suspect]
     Active Substance: ASENAPINE MALEATE
     Indication: SCHIZOPHRENIA
     Dosage: 10 MG, QD
     Route: 060
     Dates: start: 20201028, end: 20201110
  2. LAMOTRIGINE. [Concomitant]
     Active Substance: LAMOTRIGINE
     Dosage: 25 MG, QD
  3. REXULTI [Concomitant]
     Active Substance: BREXPIPRAZOLE
     Dosage: 2 MG
  4. ASENAPINE MALEATE ? BP [Suspect]
     Active Substance: ASENAPINE MALEATE
     Dosage: 5 MG, BID
     Route: 060
     Dates: start: 20200520, end: 20200630
  5. ASENAPINE MALEATE ? BP [Suspect]
     Active Substance: ASENAPINE MALEATE
     Dosage: UNK
     Route: 060
     Dates: start: 20200701, end: 20200712

REACTIONS (1)
  - Agitation [Recovered/Resolved]

NARRATIVE: CASE EVENT DATE: 20200701
